FAERS Safety Report 7205310-0 (Version None)
Quarter: 2010Q4

REPORT INFORMATION
  Report Type: 
  Country: None (occurrence: None)
  Receive Date: 20101231
  Receipt Date: 20090205
  Transmission Date: 20110411
  Serious: No
  Sender: FDA-Public Use
  Company Number: 2009BI004416

PATIENT
  Age: 47 Year
  Sex: Female

DRUGS (4)
  1. TYSABRI [Suspect]
     Indication: MULTIPLE SCLEROSIS
     Route: 042
     Dates: start: 20061114, end: 20080825
  2. TYSABRI [Suspect]
     Route: 042
     Dates: start: 20090123
  3. AVONEX [Concomitant]
     Indication: MULTIPLE SCLEROSIS
     Route: 030
  4. AVONEX [Concomitant]
     Route: 030

REACTIONS (5)
  - ASTHENIA [None]
  - BALANCE DISORDER [None]
  - EXERCISE TOLERANCE DECREASED [None]
  - FATIGUE [None]
  - MULTIPLE SCLEROSIS [None]
